FAERS Safety Report 24654769 (Version 1)
Quarter: 2024Q4

REPORT INFORMATION
  Report Type: Spontaneous
  Country: IT (occurrence: IT)
  Receive Date: 20241122
  Receipt Date: 20241122
  Transmission Date: 20250114
  Serious: Yes (Hospitalization)
  Sender: NOVARTIS
  Company Number: IT-002147023-NVSC2024IT224037

PATIENT
  Age: 79 Year
  Sex: Male

DRUGS (3)
  1. INCLISIRAN [Suspect]
     Active Substance: INCLISIRAN
     Indication: Acute myocardial infarction
     Dosage: UNK
     Route: 065
     Dates: start: 20230830
  2. INCLISIRAN [Suspect]
     Active Substance: INCLISIRAN
     Indication: Prophylaxis
  3. EZETIMIBE [Concomitant]
     Active Substance: EZETIMIBE
     Indication: Product used for unknown indication
     Dosage: 10 MG
     Route: 065

REACTIONS (3)
  - Syncope [Unknown]
  - Ankle fracture [Unknown]
  - Rib fracture [Unknown]

NARRATIVE: CASE EVENT DATE: 20240501
